FAERS Safety Report 7730204-1 (Version None)
Quarter: 2011Q3

REPORT INFORMATION
  Report Type: 
  Country: None (occurrence: None)
  Receive Date: 20110906
  Receipt Date: 20110901
  Transmission Date: 20111222
  Serious: Yes (Other)
  Sender: FDA-Public Use
  Company Number: PHHY2011US42561

PATIENT
  Sex: Female
  Weight: 89.796 kg

DRUGS (8)
  1. LEVOTHYROXINE SODIUM [Concomitant]
     Dosage: 112 MG, UNK
  2. MINOCYCLINE HCL [Concomitant]
     Dosage: UNK UKN, UNK
  3. SIMVASTATIN [Concomitant]
     Dosage: 20 MG, UNK
  4. VENLAFAXINE HYDROCHLORIDE [Concomitant]
     Dosage: 100 MG, BID
  5. OMEPRAZOLE [Concomitant]
     Dosage: UNK UKN, UNK
  6. GILENYA [Suspect]
     Indication: RELAPSING-REMITTING MULTIPLE SCLEROSIS
     Dosage: 0.5 MG, QD
     Route: 048
     Dates: start: 20110315, end: 20110513
  7. TEGRETOL [Concomitant]
     Dosage: 200 MG, BID
  8. TRAZODONE HCL [Concomitant]
     Dosage: 50 MG, QHS

REACTIONS (6)
  - HEART RATE DECREASED [None]
  - EYE SWELLING [None]
  - BLOOD PRESSURE DECREASED [None]
  - MACULAR OEDEMA [None]
  - VISUAL IMPAIRMENT [None]
  - PERIORBITAL OEDEMA [None]
